FAERS Safety Report 12974059 (Version 5)
Quarter: 2017Q2

REPORT INFORMATION
  Report Type: Spontaneous
  Country: FR (occurrence: FR)
  Receive Date: 20161124
  Receipt Date: 20170425
  Transmission Date: 20170830
  Serious: Yes (Hospitalization)
  Sender: FDA-Public Use
  Company Number: FR-ROCHE-1858054

PATIENT
  Age: 71 Year
  Sex: Male

DRUGS (2)
  1. GAZYVARO [Suspect]
     Active Substance: OBINUTUZUMAB
     Indication: CHRONIC LYMPHOCYTIC LEUKAEMIA
     Dosage: DAY 2 AND DAY 8 PERFORMED WITHOUT INCIDENT
     Route: 042
     Dates: start: 20161117
  2. PERFALGAN [Concomitant]
     Active Substance: ACETAMINOPHEN

REACTIONS (3)
  - Infusion related reaction [Not Recovered/Not Resolved]
  - Hepatocellular injury [Recovered/Resolved]
  - Tumour lysis syndrome [Recovering/Resolving]

NARRATIVE: CASE EVENT DATE: 20161117
